FAERS Safety Report 6412965-7 (Version None)
Quarter: 2009Q4

REPORT INFORMATION
  Report Type: 
  Country: None (occurrence: None)
  Receive Date: 20091023
  Receipt Date: 20091014
  Transmission Date: 20100525
  Serious: Yes (Other)
  Sender: FDA-Public Use
  Company Number: PHEH2009US03260

PATIENT
  Sex: Female

DRUGS (2)
  1. GLEEVEC [Suspect]
     Indication: MALIGNANT ANORECTAL NEOPLASM
     Dosage: 200 MG, BID
     Dates: start: 20090301
  2. ACETYLCARNITINE [Concomitant]
     Indication: MIGRAINE
     Dosage: 300 MG, UNK

REACTIONS (8)
  - BLOOD LACTATE DEHYDROGENASE INCREASED [None]
  - GENE MUTATION IDENTIFICATION TEST POSITIVE [None]
  - MALIGNANT NEOPLASM PROGRESSION [None]
  - METABOLIC DISORDER [None]
  - MUSCLE SPASMS [None]
  - OEDEMA PERIPHERAL [None]
  - SOMNOLENCE [None]
  - THYROID DISORDER [None]
